FAERS Safety Report 5359298-8 (Version None)
Quarter: 2007Q2

REPORT INFORMATION
  Report Type: 
  Country: None (occurrence: None)
  Receive Date: 20070615
  Receipt Date: 20070606
  Transmission Date: 20071010
  Serious: Yes (Other)
  Sender: FDA-Public Use
  Company Number: BR-PFIZER INC-2007047658

PATIENT
  Sex: Female

DRUGS (1)
  1. FELDENE [Suspect]
     Indication: PAIN IN EXTREMITY

REACTIONS (5)
  - INJURY [None]
  - PRURITUS [None]
  - SWELLING FACE [None]
  - THROAT TIGHTNESS [None]
  - WHEEZING [None]
